FAERS Safety Report 9080786 (Version 2)
Quarter: 2013Q1

REPORT INFORMATION
  Report Type: Spontaneous
  Country: JP (occurrence: JP)
  Receive Date: 20130218
  Receipt Date: 20130227
  Transmission Date: 20140127
  Serious: Yes (Other)
  Sender: FDA-Public Use
  Company Number: JP-BRISTOL-MYERS SQUIBB COMPANY-17384215

PATIENT
  Age: 1 Day
  Sex: Male
  Weight: 3.02 kg

DRUGS (3)
  1. ABILIFY TABS [Suspect]
     Route: 064
     Dates: end: 201210
  2. DEPAS [Suspect]
     Route: 064
     Dates: end: 201210
  3. LANDSEN [Suspect]
     Route: 064
     Dates: end: 201207

REACTIONS (3)
  - Spina bifida [Not Recovered/Not Resolved]
  - Meningomyelocele [Recovered/Resolved]
  - Arnold-Chiari malformation [Not Recovered/Not Resolved]
